FAERS Safety Report 18027759 (Version 2)
Quarter: 2020Q4

REPORT INFORMATION
  Report Type: Report from Study
  Country: TH (occurrence: TH)
  Receive Date: 20200715
  Receipt Date: 20201109
  Transmission Date: 20210113
  Serious: Yes (Hospitalization)
  Sender: FDA-Public Use
  Company Number: PHHY2019TH184605

PATIENT
  Age: 62 Year
  Sex: Male

DRUGS (10)
  1. ENTRESTO [Suspect]
     Active Substance: SACUBITRIL\VALSARTAN
     Dosage: 200 MG, BID (AFTER MEAL MORNING AND EVENING)
     Route: 048
     Dates: start: 20200331
  2. ENTRESTO [Suspect]
     Active Substance: SACUBITRIL\VALSARTAN
     Dosage: 0.5 DF, BID (HALF OF 100MG, AFTER MEAL MORNING AND EVENING)
     Route: 048
     Dates: start: 20191010
  3. ENTRESTO [Suspect]
     Active Substance: SACUBITRIL\VALSARTAN
     Indication: LEFT VENTRICULAR FAILURE
     Dosage: 0.5 DF, BID (HALF OF 200MG)
     Route: 065
     Dates: start: 20190606
  4. ENTRESTO [Suspect]
     Active Substance: SACUBITRIL\VALSARTAN
     Dosage: 0.5 DF, BID
     Route: 065
     Dates: start: 20190814
  5. ENTRESTO [Suspect]
     Active Substance: SACUBITRIL\VALSARTAN
     Dosage: 200 MG, BID
     Route: 048
     Dates: start: 20191105
  6. ENTRESTO [Suspect]
     Active Substance: SACUBITRIL\VALSARTAN
     Dosage: 0.5 DF, BID (HALF OF 200MG, AFTER MEAL MORNING AND EVENING)
     Route: 048
     Dates: start: 20190619
  7. ENTRESTO [Suspect]
     Active Substance: SACUBITRIL\VALSARTAN
     Dosage: 200 MG, BID (AFTER MEAL MORNING AND EVENING)
     Route: 048
     Dates: start: 20191203
  8. ENTRESTO [Suspect]
     Active Substance: SACUBITRIL\VALSARTAN
     Dosage: 200 MG, BID
     Route: 065
     Dates: start: 20200204
  9. ENTRESTO [Suspect]
     Active Substance: SACUBITRIL\VALSARTAN
     Dosage: 200 MG, BID (AFTER MEAL MORNING AND EVENING)
     Route: 048
     Dates: start: 20200303
  10. ENTRESTO [Suspect]
     Active Substance: SACUBITRIL\VALSARTAN
     Indication: CARDIAC FAILURE
     Dosage: 0.5 DF (97MG OF SACUBITRIL AND 103 MG OF VALSARTAN), BID
     Route: 048
     Dates: start: 20190522

REACTIONS (4)
  - Device malfunction [Unknown]
  - Cardiac disorder [Unknown]
  - Wrong technique in product usage process [Unknown]
  - Flatulence [Unknown]

NARRATIVE: CASE EVENT DATE: 20190522
